FAERS Safety Report 7374782-3 (Version None)
Quarter: 2011Q1

REPORT INFORMATION
  Report Type: 
  Country: None (occurrence: None)
  Receive Date: 20110325
  Receipt Date: 20110106
  Transmission Date: 20110831
  Serious: No
  Sender: FDA-Public Use
  Company Number: US-MYLANLABS-2010S1020428

PATIENT
  Age: 47 Year
  Sex: Female

DRUGS (7)
  1. FENTANYL-100 [Suspect]
     Indication: PAIN
     Dosage: CHANGED Q72H
     Route: 062
     Dates: start: 20090101, end: 20101001
  2. FENTANYL-100 [Suspect]
     Dosage: CHANGED Q72H
     Route: 062
     Dates: start: 20090101, end: 20101001
  3. FENTANYL-100 [Suspect]
     Dosage: CHANGED Q48HR
     Route: 062
     Dates: start: 20101001
  4. FENTANYL-100 [Suspect]
     Dosage: CHANGED Q72H
     Route: 062
     Dates: start: 20090101, end: 20101001
  5. FENTANYL-100 [Suspect]
     Dosage: CHANGED Q48HR
     Route: 062
     Dates: start: 20101001
  6. SYNTHROID [Concomitant]
     Indication: THYROID DISORDER
     Route: 048
  7. FENTANYL-100 [Suspect]
     Indication: NEURALGIA
     Dosage: CHANGED Q72H
     Route: 062
     Dates: start: 20090101, end: 20101001

REACTIONS (3)
  - DRUG EFFECT DECREASED [None]
  - RESTLESS LEGS SYNDROME [None]
  - PAIN [None]
